FAERS Safety Report 5192163-8 (Version None)
Quarter: 2006Q4

REPORT INFORMATION
  Report Type: 
  Country: None (occurrence: None)
  Receive Date: 20061221
  Receipt Date: 20061221
  Transmission Date: 20070319
  Serious: Yes (Death)
  Sender: FDA-Public Use
  Company Number: None

PATIENT
  Age: 40 Year
  Sex: Female
  Weight: 68.0396 kg

DRUGS (1)
  1. ORENCIA [Suspect]
     Dosage: 3 VIALS 4 WEEKS IV DRIP
     Route: 041

REACTIONS (1)
  - LUNG NEOPLASM MALIGNANT [None]
